FAERS Safety Report 24201315 (Version 4)
Quarter: 2025Q2

REPORT INFORMATION
  Report Type: Spontaneous
  Country: US (occurrence: US)
  Receive Date: 20240812
  Receipt Date: 20250522
  Transmission Date: 20250716
  Serious: Yes (Other)
  Sender: ELI LILLY AND COMPANY
  Company Number: US-ELI_LILLY_AND_COMPANY-US202408000385

PATIENT
  Age: 47 Year
  Sex: Female
  Weight: 108 kg

DRUGS (19)
  1. MOUNJARO [Suspect]
     Active Substance: TIRZEPATIDE
     Indication: Type 2 diabetes mellitus
     Dosage: 2.5 MG, WEEKLY (1/W)
     Route: 065
     Dates: start: 20220824, end: 20220924
  2. MOUNJARO [Suspect]
     Active Substance: TIRZEPATIDE
     Indication: Type 2 diabetes mellitus
     Dosage: 2.5 MG, WEEKLY (1/W)
     Route: 065
     Dates: start: 20220824, end: 20220924
  3. MOUNJARO [Suspect]
     Active Substance: TIRZEPATIDE
     Indication: Type 2 diabetes mellitus
     Dosage: 2.5 MG, WEEKLY (1/W)
     Route: 065
     Dates: start: 20220824, end: 20220924
  4. MOUNJARO [Suspect]
     Active Substance: TIRZEPATIDE
     Indication: Type 2 diabetes mellitus
     Dosage: 2.5 MG, WEEKLY (1/W)
     Route: 065
     Dates: start: 20220824, end: 20220924
  5. MOUNJARO [Suspect]
     Active Substance: TIRZEPATIDE
     Indication: Type 2 diabetes mellitus
     Dosage: 5 MG, WEEKLY (1/W)
     Route: 065
     Dates: start: 20221001, end: 20230414
  6. MOUNJARO [Suspect]
     Active Substance: TIRZEPATIDE
     Indication: Type 2 diabetes mellitus
     Dosage: 5 MG, WEEKLY (1/W)
     Route: 065
     Dates: start: 20221001, end: 20230414
  7. MOUNJARO [Suspect]
     Active Substance: TIRZEPATIDE
     Indication: Type 2 diabetes mellitus
     Dosage: 5 MG, WEEKLY (1/W)
     Route: 065
     Dates: start: 20221001, end: 20230414
  8. MOUNJARO [Suspect]
     Active Substance: TIRZEPATIDE
     Indication: Type 2 diabetes mellitus
     Dosage: 5 MG, WEEKLY (1/W)
     Route: 065
     Dates: start: 20221001, end: 20230414
  9. MOUNJARO [Suspect]
     Active Substance: TIRZEPATIDE
     Indication: Type 2 diabetes mellitus
     Dosage: 7.5 MG, WEEKLY (1/W)
     Route: 065
     Dates: start: 20230421, end: 20230801
  10. MOUNJARO [Suspect]
     Active Substance: TIRZEPATIDE
     Indication: Type 2 diabetes mellitus
     Dosage: 7.5 MG, WEEKLY (1/W)
     Route: 065
     Dates: start: 20230421, end: 20230801
  11. MOUNJARO [Suspect]
     Active Substance: TIRZEPATIDE
     Indication: Type 2 diabetes mellitus
     Dosage: 7.5 MG, WEEKLY (1/W)
     Route: 065
     Dates: start: 20230421, end: 20230801
  12. MOUNJARO [Suspect]
     Active Substance: TIRZEPATIDE
     Indication: Type 2 diabetes mellitus
     Dosage: 7.5 MG, WEEKLY (1/W)
     Route: 065
     Dates: start: 20230421, end: 20230801
  13. OZEMPIC [Suspect]
     Active Substance: SEMAGLUTIDE
     Indication: Product used for unknown indication
     Route: 065
     Dates: start: 202208
  14. VITAMIN C [Concomitant]
     Active Substance: ASCORBIC ACID
     Indication: General physical condition
     Dates: start: 20170101
  15. DIETARY SUPPLEMENT\HERBALS [Concomitant]
     Active Substance: DIETARY SUPPLEMENT\HERBALS
     Indication: General physical condition
     Dates: start: 20170101
  16. VITAMINS [Concomitant]
     Active Substance: VITAMINS
     Indication: General physical condition
     Dates: start: 20170101
  17. VITAMIN B12 [Concomitant]
     Active Substance: CYANOCOBALAMIN
     Indication: General physical condition
     Dates: start: 20170101
  18. BIOTIN [Concomitant]
     Active Substance: BIOTIN
     Indication: General physical condition
     Dates: start: 20170101
  19. OMEPRAZOLE [Concomitant]
     Active Substance: OMEPRAZOLE
     Indication: Gastrooesophageal reflux disease
     Dates: start: 20221210, end: 20221210

REACTIONS (7)
  - Vomiting [Not Recovered/Not Resolved]
  - Abdominal pain [Not Recovered/Not Resolved]
  - Nausea [Not Recovered/Not Resolved]
  - Constipation [Not Recovered/Not Resolved]
  - Depression [Unknown]
  - Anxiety [Unknown]
  - Stress [Unknown]

NARRATIVE: CASE EVENT DATE: 20220901
